FAERS Safety Report 22184776 (Version 1)
Quarter: 2023Q2

REPORT INFORMATION
  Report Type: Spontaneous
  Country: US (occurrence: US)
  Receive Date: 20230407
  Receipt Date: 20230407
  Transmission Date: 20230721
  Serious: No
  Sender: FDA-Public Use
  Company Number: US-Melinta Therapeutics, LLC-US-MLNT-23-00216

PATIENT
  Age: 68 Year
  Sex: Male

DRUGS (9)
  1. KIMYRSA [Suspect]
     Active Substance: ORITAVANCIN DIPHOSPHATE
     Indication: Skin ulcer
     Dosage: NOT PROVIDED.
     Route: 041
     Dates: start: 20230301, end: 20230301
  2. KIMYRSA [Suspect]
     Active Substance: ORITAVANCIN DIPHOSPHATE
     Indication: Skin necrosis
  3. KIMYRSA [Suspect]
     Active Substance: ORITAVANCIN DIPHOSPHATE
     Indication: Osteomyelitis
  4. KIMYRSA [Suspect]
     Active Substance: ORITAVANCIN DIPHOSPHATE
     Indication: Enterococcal infection
  5. BENADRYL [Concomitant]
     Active Substance: DIPHENHYDRAMINE HYDROCHLORIDE
     Indication: Premedication
     Dosage: 25 MG
     Route: 042
     Dates: start: 20230301, end: 20230301
  6. LINEZOLID [Concomitant]
     Active Substance: LINEZOLID
     Indication: Skin ulcer
     Dosage: NOT PROVIDED.
     Route: 065
  7. LINEZOLID [Concomitant]
     Active Substance: LINEZOLID
     Indication: Skin necrosis
  8. LINEZOLID [Concomitant]
     Active Substance: LINEZOLID
     Indication: Osteomyelitis
  9. LINEZOLID [Concomitant]
     Active Substance: LINEZOLID
     Indication: Enterococcal infection

REACTIONS (7)
  - Tachypnoea [Recovered/Resolved]
  - Chills [Recovered/Resolved]
  - Infusion related reaction [Recovered/Resolved]
  - Body temperature increased [Recovered/Resolved]
  - Blood pressure systolic decreased [Recovered/Resolved]
  - Tachycardia [Recovered/Resolved]
  - Off label use [Recovered/Resolved]

NARRATIVE: CASE EVENT DATE: 20230301
